FAERS Safety Report 5152195-2 (Version None)
Quarter: 2006Q4

REPORT INFORMATION
  Report Type: 
  Country: None (occurrence: None)
  Receive Date: 20061116
  Receipt Date: 20061107
  Transmission Date: 20070319
  Serious: Yes (Other)
  Sender: FDA-Public Use
  Company Number: IL-GLAXOSMITHKLINE-B0446676A

PATIENT

DRUGS (1)
  1. ZEFFIX [Suspect]
     Indication: HEPATITIS B
     Dosage: 3MGK PER DAY
     Route: 065

REACTIONS (3)
  - HBV DNA INCREASED [None]
  - HEPATITIS [None]
  - HEPATITIS B VIRUS [None]
